FAERS Safety Report 19373144 (Version 1)
Quarter: 2021Q2

REPORT INFORMATION
  Report Type: Spontaneous
  Country: PL (occurrence: PL)
  Receive Date: 20210604
  Receipt Date: 20210604
  Transmission Date: 20210717
  Serious: Yes (Other)
  Sender: FDA-Public Use
  Company Number: PL-ACCORD-227010

PATIENT
  Age: 67 Year
  Sex: Female
  Weight: 71 kg

DRUGS (5)
  1. OXALIPLATIN ACCORD [Suspect]
     Active Substance: OXALIPLATIN
     Indication: COLON CANCER
     Dosage: 0.05 / 10ML P. T16926. DOSE: 148, UNIT UNKNOWN. THERAPY ONGOING
     Route: 042
     Dates: start: 20180612
  2. AVASTIN [Concomitant]
     Active Substance: BEVACIZUMAB
     Indication: COLON CANCER
     Dosage: 0,1, SERIA: B7230H18 (20). DOSE: 710, UNIT UNKNOWN. THERAPY ONGOING
     Route: 042
     Dates: start: 20180612
  3. AVASTIN [Concomitant]
     Active Substance: BEVACIZUMAB
     Indication: COLON CANCER
     Dosage: 0,4, SERIA: N7179H03. DOSE: 710, UNIT UNKNOWN. THERAPY ONGOING
     Route: 042
     Dates: start: 20180612
  4. FLUOROURACIL. [Suspect]
     Active Substance: FLUOROURACIL
     Indication: COLON CANCER
     Dosage: 5,0/100ML, SERIA: K17058117. DOSE: 817,50, UNIT UNKNOWN. THERAPY ONGOING
     Route: 042
     Dates: start: 20180612
  5. OXALIPLATIN ACCORD [Suspect]
     Active Substance: OXALIPLATIN
     Indication: COLON CANCER
     Dosage: 0,1/20ML, S. PX00573. DOSE: 148, UNIT UNKNOWN. THERAPY ONGOING
     Route: 042
     Dates: start: 20180612

REACTIONS (1)
  - Asthenia [Recovering/Resolving]

NARRATIVE: CASE EVENT DATE: 20180721
